FAERS Safety Report 16821349 (Version 5)
Quarter: 2020Q1

REPORT INFORMATION
  Report Type: Report from Study
  Country: JP (occurrence: JP)
  Receive Date: 20190918
  Receipt Date: 20200326
  Transmission Date: 20200409
  Serious: No
  Sender: FDA-Public Use
  Company Number: JP-TEVA-2019-JP-1092700

PATIENT
  Age: 34 Year
  Sex: Female
  Weight: 48 kg

DRUGS (9)
  1. GLATIRAMER ACETATE. [Suspect]
     Active Substance: GLATIRAMER ACETATE
     Indication: RELAPSING-REMITTING MULTIPLE SCLEROSIS
     Dosage: 20 MILLIGRAM/MILLILITERS DAILY;
     Route: 058
     Dates: start: 20181226, end: 20190902
  2. ROZEREM TABLETS [Concomitant]
     Dates: start: 20190107, end: 20190206
  3. LYRICA [Concomitant]
     Active Substance: PREGABALIN
     Route: 065
     Dates: start: 20181224
  4. MAGNESIUM OXIDE. [Concomitant]
     Active Substance: MAGNESIUM OXIDE
     Route: 065
     Dates: start: 20181221
  5. ANGE28 [Concomitant]
     Route: 065
  6. ZOLPIDEM TARTRATE. [Concomitant]
     Active Substance: ZOLPIDEM TARTRATE
     Route: 065
     Dates: start: 20181221, end: 20181230
  7. GABALON [Concomitant]
     Active Substance: BACLOFEN
     Route: 065
     Dates: start: 20190108
  8. LOXOPROFEN [Concomitant]
     Active Substance: LOXOPROFEN
     Route: 065
     Dates: start: 20181224, end: 20181229
  9. MYONAL [Concomitant]
     Route: 065
     Dates: start: 20190115, end: 20190128

REACTIONS (4)
  - Injection site pruritus [Recovering/Resolving]
  - Injection site pain [Recovering/Resolving]
  - Injection site erythema [Recovering/Resolving]
  - Injection site swelling [Recovering/Resolving]

NARRATIVE: CASE EVENT DATE: 20181226
